FAERS Safety Report 4772000-3 (Version None)
Quarter: 2005Q3

REPORT INFORMATION
  Report Type: 
  Country: None (occurrence: None)
  Receive Date: 20050916
  Receipt Date: 20050823
  Transmission Date: 20060218
  Serious: Yes (Hospitalization)
  Sender: FDA-Public Use
  Company Number: FR-NOVOPROD-246443

PATIENT
  Age: 43 Year
  Sex: Female
  Weight: 48 kg

DRUGS (2)
  1. NORDITROPIN [Suspect]
     Indication: GROWTH HORMONE DEFICIENCY
     Dosage: 15 UNK, UNK
     Dates: start: 20030924
  2. LEVOTHYROXINE SODIUM [Concomitant]
     Dosage: 75 UG, UNK
     Dates: start: 20030924

REACTIONS (3)
  - COMA [None]
  - CONVULSION [None]
  - EPILEPSY [None]
